FAERS Safety Report 8005273-4 (Version None)
Quarter: 2011Q4

REPORT INFORMATION
  Report Type: 
  Country: None (occurrence: None)
  Receive Date: 20111223
  Receipt Date: 20111219
  Transmission Date: 20120403
  Serious: Yes (Hospitalization)
  Sender: FDA-Public Use
  Company Number: US-ROXANE LABORATORIES, INC.-2011-RO-01835RO

PATIENT
  Sex: Female

DRUGS (13)
  1. LASIX [Concomitant]
  2. SOLIRIS [Suspect]
     Route: 042
     Dates: start: 20080814
  3. FLORASTOR [Concomitant]
  4. POTASSIUM [Concomitant]
  5. NEXIUM [Concomitant]
  6. VITAMIN B-12 [Concomitant]
  7. DIGOXIN [Suspect]
  8. ASPIRIN [Concomitant]
  9. COZAAR [Concomitant]
  10. TRAMADOL HCL [Concomitant]
  11. CARDURA [Concomitant]
  12. LABETALOL HCL [Concomitant]
  13. SOLIRIS [Suspect]
     Indication: PAROXYSMAL NOCTURNAL HAEMOGLOBINURIA
     Route: 042
     Dates: start: 20080717, end: 20080814

REACTIONS (4)
  - DEHYDRATION [None]
  - UPPER RESPIRATORY TRACT INFECTION [None]
  - GASTROINTESTINAL HAEMORRHAGE [None]
  - TOXICITY TO VARIOUS AGENTS [None]
